FAERS Safety Report 11757066 (Version 2)
Quarter: 2016Q1

REPORT INFORMATION
  Report Type: Spontaneous
  Country: US (occurrence: US)
  Receive Date: 20151120
  Receipt Date: 20160118
  Transmission Date: 20160525
  Serious: No
  Sender: FDA-Public Use
  Company Number: US-ASTRAZENECA-2015SF09830

PATIENT
  Sex: Female
  Weight: 81.6 kg

DRUGS (8)
  1. SYMBICORT [Suspect]
     Active Substance: BUDESONIDE\FORMOTEROL FUMARATE DIHYDRATE
     Indication: COUGH
     Dosage: 2 PUFFS ONCE A DAY EITHER IN THE MORNING OR AT NIGHT.
     Route: 055
  2. ZYRTEC OTC [Concomitant]
     Indication: HYPERSENSITIVITY
     Route: 048
  3. SYMBICORT [Suspect]
     Active Substance: BUDESONIDE\FORMOTEROL FUMARATE DIHYDRATE
     Indication: ASTHMA
     Dosage: 160 4.5 UG, 2 PUFFS TWO TIMES A DAY
     Route: 055
     Dates: start: 2012
  4. SYMBICORT [Suspect]
     Active Substance: BUDESONIDE\FORMOTEROL FUMARATE DIHYDRATE
     Indication: ASTHMA
     Dosage: 2 PUFFS ONCE A DAY EITHER IN THE MORNING OR AT NIGHT.
     Route: 055
  5. ACCOLATE [Suspect]
     Active Substance: ZAFIRLUKAST
     Indication: HYPERSENSITIVITY
     Route: 048
  6. DIOVAN [Concomitant]
     Active Substance: VALSARTAN
     Indication: BLOOD PRESSURE ABNORMAL
     Route: 048
  7. CALAN [Concomitant]
     Active Substance: VERAPAMIL HYDROCHLORIDE
     Indication: BLOOD PRESSURE ABNORMAL
     Route: 048
  8. SYMBICORT [Suspect]
     Active Substance: BUDESONIDE\FORMOTEROL FUMARATE DIHYDRATE
     Indication: COUGH
     Dosage: 160 4.5 UG, 2 PUFFS TWO TIMES A DAY
     Route: 055
     Dates: start: 2012

REACTIONS (5)
  - Intentional product misuse [Unknown]
  - Device malfunction [Unknown]
  - Device failure [Unknown]
  - Circumstance or information capable of leading to medication error [Unknown]
  - Weight abnormal [Unknown]
